FAERS Safety Report 6543765-5 (Version None)
Quarter: 2010Q1

REPORT INFORMATION
  Report Type: 
  Country: None (occurrence: None)
  Receive Date: 20100120
  Receipt Date: 20090220
  Transmission Date: 20100710
  Serious: No
  Sender: FDA-Public Use
  Company Number: US-BRISTOL-MYERS SQUIBB COMPANY-14516934

PATIENT
  Sex: Male

DRUGS (3)
  1. TRAZODONE HCL [Suspect]
  2. LUNESTA [Suspect]
  3. AMBIEN [Suspect]

REACTIONS (1)
  - DRUG INEFFECTIVE [None]
